FAERS Safety Report 6677673-6 (Version None)
Quarter: 2010Q2

REPORT INFORMATION
  Report Type: 
  Country: None (occurrence: None)
  Receive Date: 20100412
  Receipt Date: 20100316
  Transmission Date: 20101027
  Serious: No
  Sender: FDA-Public Use
  Company Number: US-ALEXION-A201000296

PATIENT
  Sex: Male

DRUGS (9)
  1. SOLIRIS [Suspect]
     Indication: PAROXYSMAL NOCTURNAL HAEMOGLOBINURIA
     Dosage: 600 MG, QW
     Route: 042
     Dates: start: 20090706
  2. SOLIRIS [Suspect]
     Dosage: 900 MG, Q2W
     Route: 042
     Dates: start: 20090803
  3. SOLIRIS [Suspect]
     Dosage: 600 MG, QW
     Dates: start: 20091012, end: 20091102
  4. SOLIRIS [Suspect]
     Dosage: UNK
     Route: 042
  5. PREDNISOLONE [Concomitant]
     Indication: HYPOTHALAMO-PITUITARY DISORDER
     Dosage: 14 MG, QD
     Route: 048
  6. PREDNISOLONE [Concomitant]
     Dosage: 14 MG, QD
     Route: 048
  7. LEVOTHYROXINE SODIUM [Concomitant]
     Dosage: 12.5 UG, QD
     Route: 048
  8. FOLIC ACID [Concomitant]
     Dosage: 1 TAB, PRN
     Route: 048
  9. LASIX [Concomitant]
     Dosage: 1, PRN
     Route: 048

REACTIONS (6)
  - ABDOMINAL PAIN [None]
  - ASTHENIA [None]
  - BACK PAIN [None]
  - FATIGUE [None]
  - OEDEMA PERIPHERAL [None]
  - RASH GENERALISED [None]
